FAERS Safety Report 5202441-1 (Version None)
Quarter: 2006Q4

REPORT INFORMATION
  Report Type: 
  Country: None (occurrence: None)
  Receive Date: 20061012
  Receipt Date: 20060629
  Transmission Date: 20070319
  Serious: Yes (Other)
  Sender: FDA-Public Use
  Company Number: 2006082013

PATIENT
  Age: 67 Year
  Sex: Female

DRUGS (5)
  1. DEPO-ESTRADIOL [Suspect]
     Indication: HORMONE REPLACEMENT THERAPY
     Dosage: INTRAMUSCULAR
     Route: 030
     Dates: start: 19810101, end: 20020101
  2. PREMARIN [Suspect]
     Indication: HORMONE REPLACEMENT THERAPY
     Dates: start: 19810101, end: 20020101
  3. ESTRADIOL [Suspect]
     Indication: HORMONE REPLACEMENT THERAPY
     Dates: start: 19810101, end: 20020101
  4. ESTRATEST [Suspect]
     Indication: HORMONE REPLACEMENT THERAPY
     Dates: start: 19810101, end: 20020101
  5. ESTRACE [Suspect]
     Indication: HORMONE REPLACEMENT THERAPY
     Dates: start: 19810101, end: 20020101

REACTIONS (1)
  - BREAST CANCER FEMALE [None]
